FAERS Safety Report 5104498-5 (Version None)
Quarter: 2006Q3

REPORT INFORMATION
  Report Type: 
  Country: None (occurrence: None)
  Receive Date: 20060731
  Receipt Date: 20060526
  Transmission Date: 20061208
  Serious: Yes (Hospitalization)
  Sender: FDA-Public Use
  Company Number: US-JNJFOC-20060601208

PATIENT
  Age: 36 Year
  Sex: Male
  Weight: 93.6 kg

DRUGS (11)
  1. RISPERDAL [Suspect]
     Indication: DRUG USE FOR UNKNOWN INDICATION
  2. COUMADIN [Concomitant]
  3. HALOPERIDOL [Concomitant]
  4. THIAMINE (THIAMINE) [Concomitant]
  5. HYDROCODONE (HYDROCODONE) [Concomitant]
  6. MULTIVITAMIN [Concomitant]
  7. ALBUTEROL [Concomitant]
  8. ADVAIR DISKUS 100/50 [Concomitant]
  9. SEREVENT [Concomitant]
  10. CEPHALEXIN [Concomitant]
  11. DOCOLACE (DOCUSATE SODIUM) [Concomitant]

REACTIONS (1)
  - DYSARTHRIA [None]
